FAERS Safety Report 17365650 (Version 2)
Quarter: 2022Q2

REPORT INFORMATION
  Report Type: Spontaneous
  Country: CA (occurrence: CA)
  Receive Date: 20200204
  Receipt Date: 20220404
  Transmission Date: 20220721
  Serious: Yes (Other)
  Sender: FDA-Public Use
  Company Number: CA-SA-2020SA023794

PATIENT
  Sex: Female

DRUGS (10)
  1. HYDROXYCHLOROQUINE SULFATE [Suspect]
     Active Substance: HYDROXYCHLOROQUINE SULFATE
  2. LEFLUNOMIDE [Suspect]
     Active Substance: LEFLUNOMIDE
  3. SULFASALAZINE [Suspect]
     Active Substance: SULFASALAZINE
     Indication: Rheumatoid arthritis
  4. METHOTREXATE [Suspect]
     Active Substance: METHOTREXATE
     Indication: Rheumatoid arthritis
  5. HUMIRA [Suspect]
     Active Substance: ADALIMUMAB
     Route: 058
  6. ORENCIA [Suspect]
     Active Substance: ABATACEPT
  7. RITUXAN [Suspect]
     Active Substance: RITUXIMAB
     Route: 042
  8. SIMPONI [Suspect]
     Active Substance: GOLIMUMAB
     Route: 058
  9. LYRICA [Concomitant]
     Active Substance: PREGABALIN
  10. CELEBREX [Concomitant]
     Active Substance: CELECOXIB

REACTIONS (12)
  - Amnesia [Unknown]
  - Gastric disorder [Unknown]
  - Musculoskeletal pain [Unknown]
  - Pain [Unknown]
  - Peripheral swelling [Unknown]
  - Skin ulcer [Unknown]
  - Drug intolerance [Unknown]
  - Rash [Unknown]
  - Contraindicated product administered [Unknown]
  - Mycobacterium tuberculosis complex test positive [Unknown]
  - Interferon gamma release assay positive [Unknown]
  - Drug ineffective [Unknown]
